FAERS Safety Report 8000948-5 (Version None)
Quarter: 2011Q4

REPORT INFORMATION
  Report Type: 
  Country: None (occurrence: None)
  Receive Date: 20111219
  Receipt Date: 20111205
  Transmission Date: 20120403
  Serious: Yes (Hospitalization)
  Sender: FDA-Public Use
  Company Number: 2011MA017227

PATIENT
  Sex: Male

DRUGS (11)
  1. LASIX [Concomitant]
  2. CARVEDILOL [Concomitant]
  3. ZOLPIDEM [Concomitant]
  4. METHADONE HCL [Concomitant]
  5. FUROSEMIDE [Concomitant]
  6. SPIRONOLACTONE [Concomitant]
  7. LISINOPRIL [Concomitant]
  8. ALPRAZOLAM [Concomitant]
  9. MOXIFLOXACIN [Concomitant]
  10. DIGOXIN [Suspect]
     Indication: PRODUCT ORIGIN UNKNOWN
     Dosage: 0.125 MG;QD;PO
     Route: 048
     Dates: start: 20061124, end: 20070726
  11. WARFARIN SODIUM [Concomitant]

REACTIONS (1)
  - HOSPITALISATION [None]
